FAERS Safety Report 4739838-X (Version None)
Quarter: 2005Q3

REPORT INFORMATION
  Report Type: 
  Country: None (occurrence: None)
  Receive Date: 20050810
  Receipt Date: 20050518
  Transmission Date: 20060218
  Serious: No
  Sender: FDA-Public Use
  Company Number: US-GLAXOSMITHKLINE-A0559178A

PATIENT
  Age: 34 Year
  Sex: Female

DRUGS (2)
  1. PAROXETINE HCL [Suspect]
     Indication: DEPRESSION
     Dosage: 12.5MG PER DAY
     Route: 048
     Dates: start: 20050103
  2. NO CONCURRENT MEDICATION [Concomitant]

REACTIONS (2)
  - BLOOD PROLACTIN INCREASED [None]
  - DRUG EXPOSURE DURING PREGNANCY [None]
